FAERS Safety Report 4759065-X (Version None)
Quarter: 2005Q3

REPORT INFORMATION
  Report Type: 
  Country: None (occurrence: None)
  Receive Date: 20050826
  Receipt Date: 20050812
  Transmission Date: 20060218
  Serious: Yes (Hospitalization)
  Sender: FDA-Public Use
  Company Number: 170534

PATIENT
  Sex: Female

DRUGS (1)
  1. AVONEX [Suspect]
     Indication: MULTIPLE SCLEROSIS
     Dosage: 30 UG; QW; IM
     Route: 030

REACTIONS (5)
  - BIOPSY CERVIX [None]
  - HEADACHE [None]
  - PAIN [None]
  - POSTOPERATIVE ADHESION [None]
  - UTERINE DILATION AND CURETTAGE [None]
